FAERS Safety Report 8809366 (Version 2)
Quarter: 2012Q4

REPORT INFORMATION
  Report Type: 
  Country: JP (occurrence: JP)
  Receive Date: 20120926
  Receipt Date: 20121025
  Transmission Date: 20130627
  Serious: Yes (Other)
  Sender: FDA-Public Use
  Company Number: JP-JNJFOC-20120901283

PATIENT
  Age: 9 None
  Sex: Female

DRUGS (2)
  1. TRAMCET [Suspect]
     Indication: PAIN
     Dosage: 1 per 1 day
     Route: 048
     Dates: start: 201206, end: 201207
  2. NAUZELIN [Concomitant]
     Indication: PRODUCT USED FOR UNKNOWN INDICATION
     Route: 048

REACTIONS (3)
  - Blood creatinine increased [Recovered/Resolved]
  - Dehydration [Recovered/Resolved]
  - Decreased appetite [Recovered/Resolved]
